FAERS Safety Report 9358095 (Version 3)
Quarter: 2013Q4

REPORT INFORMATION
  Report Type: Spontaneous
  Country: US (occurrence: US)
  Receive Date: 20130620
  Receipt Date: 20131001
  Transmission Date: 20140711
  Serious: No
  Sender: FDA-Public Use
  Company Number: US-009507513-1306USA006231

PATIENT
  Sex: Female
  Weight: 74.83 kg

DRUGS (1)
  1. IMPLANON [Suspect]
     Indication: CONTRACEPTION
     Dosage: UNK
     Route: 059
     Dates: start: 20110503

REACTIONS (4)
  - Endometrial hypertrophy [Unknown]
  - Ovarian cyst [Unknown]
  - Vaginal haemorrhage [Unknown]
  - Drug ineffective [Unknown]
